FAERS Safety Report 6668494-9 (Version None)
Quarter: 2010Q2

REPORT INFORMATION
  Report Type: 
  Country: None (occurrence: None)
  Receive Date: 20100406
  Receipt Date: 20100331
  Transmission Date: 20101027
  Serious: Yes (Death)
  Sender: FDA-Public Use
  Company Number: PHHY2010US20386

PATIENT
  Sex: Male
  Weight: 74.83 kg

DRUGS (2)
  1. EXJADE [Suspect]
     Indication: LYMPHATIC DISORDER
     Dosage: 500 MG DAILY
     Route: 048
     Dates: start: 20090409, end: 20100331
  2. EXJADE [Suspect]
     Indication: BLOOD DISORDER

REACTIONS (1)
  - DEATH [None]
